FAERS Safety Report 18963488 (Version 1)
Quarter: 2021Q1

REPORT INFORMATION
  Report Type: Spontaneous
  Country: DE (occurrence: DE)
  Receive Date: 20210303
  Receipt Date: 20210303
  Transmission Date: 20210420
  Serious: Yes (Other)
  Sender: FDA-Public Use
  Company Number: NVSC2021DE042759

PATIENT
  Age: 69 Year
  Sex: Female
  Weight: 65 kg

DRUGS (1)
  1. TIMOLOL MALEATE. [Suspect]
     Active Substance: TIMOLOL MALEATE
     Indication: GLAUCOMA
     Dosage: 1 DRP, Q12H (1 TR. ABEND, 1 TR. MORGEN)
     Route: 065

REACTIONS (7)
  - Tinnitus [Unknown]
  - Pruritus [Unknown]
  - Nightmare [Unknown]
  - Burning sensation [Unknown]
  - Hallucination [Unknown]
  - Pain [Unknown]
  - Limb discomfort [Unknown]

NARRATIVE: CASE EVENT DATE: 20060601
